FAERS Safety Report 10229878 (Version 1)
Quarter: 2014Q2

REPORT INFORMATION
  Report Type: Report from Study
  Country: US (occurrence: US)
  Receive Date: 20140611
  Receipt Date: 20140611
  Transmission Date: 20141212
  Serious: Yes (Death)
  Sender: FDA-Public Use
  Company Number: PHEH2014US011662

PATIENT
  Sex: Female

DRUGS (6)
  1. GLEEVEC [Suspect]
     Indication: ABDOMINAL NEOPLASM
     Dosage: 400 MG, DAILY
     Route: 048
     Dates: start: 20140110
  2. VOLTAREN//DICLOFENAC SODIUM [Concomitant]
     Dosage: UNK UKN, UNK
  3. CELEBREX [Concomitant]
     Dosage: UNK UKN, UNK
  4. TRICOR [Concomitant]
     Dosage: UNK UKN, UNK
  5. ZOCOR [Concomitant]
     Dosage: UNK UKN, UNK
  6. ESTROPIPATE [Concomitant]
     Dosage: UNK UKN, UNK

REACTIONS (1)
  - Post procedural complication [Fatal]
